FAERS Safety Report 4887327-4 (Version None)
Quarter: 2005Q4

REPORT INFORMATION
  Report Type: 
  Country: None (occurrence: None)
  Receive Date: 20051221
  Receipt Date: 20050824
  Transmission Date: 20060501
  Serious: No
  Sender: FDA-Public Use
  Company Number: US-YAMANOUCHI-YPA20050450

PATIENT
  Age: 70 Year
  Sex: Female
  Weight: 46.2669 kg

DRUGS (4)
  1. VESICARE [Suspect]
     Indication: HYPERTONIC BLADDER
     Dosage: 5 MG QD PO
     Route: 048
     Dates: start: 20050805, end: 20050801
  2. VESICARE [Suspect]
     Indication: HYPERTONIC BLADDER
     Dosage: 10 MG QD PO
     Route: 048
     Dates: start: 20050801
  3. VITAMINS [Concomitant]
  4. PREVACID [Concomitant]

REACTIONS (7)
  - ABDOMINAL PAIN [None]
  - CHROMATURIA [None]
  - CONSTIPATION [None]
  - DRY MOUTH [None]
  - HEPATIC PAIN [None]
  - RENAL PAIN [None]
  - VISION BLURRED [None]
